FAERS Safety Report 9386244 (Version 2)
Quarter: 2013Q3

REPORT INFORMATION
  Report Type: Spontaneous
  Country: BR (occurrence: BR)
  Receive Date: 20130708
  Receipt Date: 20130719
  Transmission Date: 20140515
  Serious: Yes (Other)
  Sender: FDA-Public Use
  Company Number: BR-AMGEN-BRASP2013047358

PATIENT
  Age: 63 Year
  Sex: Female

DRUGS (8)
  1. ENBREL [Suspect]
     Indication: RHEUMATOID ARTHRITIS
     Dosage: 50 MG, ONCE WEEKLY
     Route: 058
     Dates: start: 201210
  2. LYRICA [Concomitant]
     Dosage: UNK
  3. GABANEURIN [Concomitant]
     Indication: PAIN
     Dosage: 300 MG, AS NEEDED
  4. ENALAPRIL MALEATE [Concomitant]
     Dosage: 10 MG, 1X/DAY
  5. CRESTOR [Concomitant]
     Indication: BLOOD CHOLESTEROL ABNORMAL
     Dosage: 1 TABLET (10 MG), 1X/DAY (AT NIGHT)
  6. NATRILIX                           /00340101/ [Concomitant]
     Indication: BLOOD PRESSURE ABNORMAL
     Dosage: STRENGTH 1.5MG
     Dates: start: 201304
  7. VITIS VINIFERA [Concomitant]
     Indication: CIRCULATORY COLLAPSE
     Dosage: STRENGTH 150MG
     Dates: start: 201305
  8. PANTOPRAZOL [Concomitant]
     Dosage: 40 MG, TWICE A DAY, SHE TAKES ^ONLY ONE^ IN THE MORNING

REACTIONS (16)
  - Immunosuppression [Not Recovered/Not Resolved]
  - Bronchial disorder [Recovered/Resolved]
  - Arthropathy [Not Recovered/Not Resolved]
  - Back pain [Recovered/Resolved]
  - Pleural effusion [Recovering/Resolving]
  - Cough [Recovered/Resolved]
  - Arthralgia [Unknown]
  - Bone pain [Not Recovered/Not Resolved]
  - Musculoskeletal stiffness [Unknown]
  - Gait disturbance [Not Recovered/Not Resolved]
  - Bedridden [Not Recovered/Not Resolved]
  - Movement disorder [Not Recovered/Not Resolved]
  - Pain [Not Recovered/Not Resolved]
  - Hypoaesthesia [Not Recovered/Not Resolved]
  - Pneumonia [Recovered/Resolved]
  - Anaemia [Unknown]
